FAERS Safety Report 5900209-1 (Version None)
Quarter: 2008Q3

REPORT INFORMATION
  Report Type: 
  Country: None (occurrence: None)
  Receive Date: 20080926
  Receipt Date: 20080924
  Transmission Date: 20090109
  Serious: Yes (Death)
  Sender: FDA-Public Use
  Company Number: JP-BRISTOL-MYERS SQUIBB COMPANY-14347355

PATIENT
  Age: 45 Year
  Sex: Female

DRUGS (3)
  1. TAXOL [Suspect]
     Indication: CERVIX CARCINOMA
     Route: 041
     Dates: start: 20080617, end: 20080812
  2. AQUPLA [Suspect]
     Indication: CERVIX CARCINOMA
     Route: 041
     Dates: start: 20080617, end: 20080812
  3. OXYCODONE HCL [Concomitant]
     Route: 048
     Dates: start: 20080424

REACTIONS (1)
  - TUMOUR HAEMORRHAGE [None]
